FAERS Safety Report 4395272-6 (Version None)
Quarter: 2004Q3

REPORT INFORMATION
  Report Type: 
  Country: None (occurrence: None)
  Receive Date: 20040712
  Receipt Date: 20040608
  Transmission Date: 20050211
  Serious: Yes (Death)
  Sender: FDA-Public Use
  Company Number: NL-MERCK-0406NLD00006

PATIENT
  Age: 96 Year
  Sex: Female

DRUGS (5)
  1. ACETAMINOPHEN [Concomitant]
     Route: 048
     Dates: start: 19921201
  2. FUROSEMIDE [Concomitant]
     Route: 048
     Dates: start: 19921207
  3. HYPROMELLOSE [Concomitant]
     Route: 047
     Dates: start: 20001104
  4. NORTRIPTYLINE HYDROCHLORIDE [Concomitant]
     Route: 048
     Dates: start: 20010605
  5. VIOXX [Suspect]
     Indication: PAIN IN EXTREMITY
     Route: 048
     Dates: start: 20040423, end: 20040501

REACTIONS (2)
  - DEATH [None]
  - GASTRIC PERFORATION [None]
